FAERS Safety Report 4759469-5 (Version None)
Quarter: 2005Q3

REPORT INFORMATION
  Report Type: 
  Country: None (occurrence: None)
  Receive Date: 20050831
  Receipt Date: 20050818
  Transmission Date: 20060218
  Serious: Yes (Hospitalization)
  Sender: FDA-Public Use
  Company Number: 2005-03074

PATIENT
  Age: 57 Year
  Sex: Male
  Weight: 63.5 kg

DRUGS (5)
  1. PREDNISONE [Suspect]
     Indication: JUVENILE ARTHRITIS
     Dosage: TAPER DOSE 80 MG, ORAL
     Route: 048
     Dates: start: 19940101, end: 20040201
  2. PREDNISONE [Suspect]
     Dosage: 1 MG DAILY, ORAL
     Route: 048
     Dates: start: 20040201
  3. MAGNESIUM (MAGNESIUM) [Concomitant]
  4. MORPHINE [Concomitant]
  5. ROGAINE [Concomitant]

REACTIONS (6)
  - HAIR GROWTH ABNORMAL [None]
  - HYPOTRICHOSIS [None]
  - KYPHOSIS [None]
  - OSTEOPOROSIS [None]
  - TOOTH LOSS [None]
  - TOOTH MALFORMATION [None]
